FAERS Safety Report 5303069-5 (Version None)
Quarter: 2007Q2

REPORT INFORMATION
  Report Type: 
  Country: None (occurrence: None)
  Receive Date: 20070420
  Receipt Date: 20070412
  Transmission Date: 20071010
  Serious: Yes (Hospitalization)
  Sender: FDA-Public Use
  Company Number: US-BRISTOL-MYERS SQUIBB COMPANY-13751276

PATIENT
  Age: 83 Year
  Sex: Male

DRUGS (4)
  1. METFORMIN HCL [Suspect]
     Indication: DIABETES MELLITUS
     Route: 048
     Dates: start: 20010126, end: 20060204
  2. PRINIVIL [Suspect]
     Indication: HYPERTENSION
     Route: 048
     Dates: start: 20010101, end: 20060204
  3. FUROSEMIDE [Concomitant]
  4. GLYBURIDE [Concomitant]

REACTIONS (5)
  - CARDIAC FAILURE [None]
  - HYPOGLYCAEMIA [None]
  - HYPOTENSION [None]
  - MENTAL STATUS CHANGES [None]
  - RENAL FAILURE ACUTE [None]
